FAERS Safety Report 10152699 (Version 1)
Quarter: 2014Q2

REPORT INFORMATION
  Report Type: Spontaneous
  Country: US (occurrence: US)
  Receive Date: 20140505
  Receipt Date: 20140505
  Transmission Date: 20141212
  Serious: Yes (Other)
  Sender: FDA-Public Use
  Company Number: US-BAYER-2014-061260

PATIENT
  Age: 72 Year
  Sex: Female
  Weight: 54.42 kg

DRUGS (4)
  1. ALKA-SELTZER ORIGINAL [Suspect]
     Indication: REFLUX GASTRITIS
     Dosage: 1 DF, 3-4 TIMES A DAY
     Route: 048
     Dates: start: 2013, end: 20140418
  2. MOTRIN [Concomitant]
  3. POTASSIUM [Concomitant]
  4. VITAMIN B12 [Concomitant]

REACTIONS (3)
  - Catheter site haemorrhage [Recovered/Resolved]
  - Incorrect drug administration duration [None]
  - Intentional product misuse [None]
